FAERS Safety Report 20189794 (Version 1)
Quarter: 2021Q4

REPORT INFORMATION
  Report Type: Report from Study
  Country: US (occurrence: US)
  Receive Date: 20211215
  Receipt Date: 20211215
  Transmission Date: 20220303
  Serious: No
  Sender: FDA-Public Use
  Company Number: US-KYOWAKIRIN-2021BKK020635

PATIENT

DRUGS (2)
  1. CRYSVITA [Suspect]
     Active Substance: BUROSUMAB-TWZA
     Indication: Hereditary hypophosphataemic rickets
     Dosage: STRENGTH 10 AND 30 MG/ML COMBINED TO ACHIEVE DOSE OF 70 MG, ONCE EVERY 28 DAYS
     Route: 058
     Dates: start: 20180716
  2. CRYSVITA [Suspect]
     Active Substance: BUROSUMAB-TWZA
     Indication: Hereditary hypophosphataemic rickets
     Dosage: STRENGTH 30 AND 10 MG/ML COMBINED TO ACHIEVE DOSE OF 70 MG, ONCE EVERY 28 DAYS
     Route: 058
     Dates: start: 20180716

REACTIONS (2)
  - Pruritus [Recovered/Resolved]
  - Contusion [Recovered/Resolved]

NARRATIVE: CASE EVENT DATE: 20210101
